FAERS Safety Report 25259484 (Version 1)
Quarter: 2025Q2

REPORT INFORMATION
  Report Type: Report from Study
  Country: DE (occurrence: DE)
  Receive Date: 20250501
  Receipt Date: 20250501
  Transmission Date: 20250717
  Serious: Yes (Other)
  Sender: AUROBINDO
  Company Number: DE-ARISTO PHARMA-LORA-PREG202103081

PATIENT
  Age: 34 Year
  Sex: Female

DRUGS (2)
  1. PREGABALIN [Suspect]
     Active Substance: PREGABALIN
     Indication: Product used for unknown indication
     Route: 065
  2. LORAZEPAM [Suspect]
     Active Substance: LORAZEPAM
     Indication: Product used for unknown indication
     Route: 065

REACTIONS (9)
  - Drug abuse [Unknown]
  - Agitation [Unknown]
  - Dysarthria [Unknown]
  - Logorrhoea [Unknown]
  - Nervousness [Unknown]
  - Restlessness [Unknown]
  - Vestibular disorder [Unknown]
  - Mydriasis [Unknown]
  - Mental disorder [Unknown]
